FAERS Safety Report 21513958 (Version 2)
Quarter: 2022Q4

REPORT INFORMATION
  Report Type: Spontaneous
  Country: US (occurrence: US)
  Receive Date: 20221027
  Receipt Date: 20221121
  Transmission Date: 20230113
  Serious: Yes (Other)
  Sender: FDA-Public Use
  Company Number: US-LUPIN PHARMACEUTICALS INC.-2022-12743

PATIENT

DRUGS (1)
  1. LISINOPRIL [Suspect]
     Active Substance: LISINOPRIL
     Indication: Hypertension
     Dosage: UNK
     Route: 065

REACTIONS (5)
  - Rectal haemorrhage [Recovered/Resolved]
  - Abdominal pain upper [Recovered/Resolved]
  - Umbilical discharge [Recovered/Resolved]
  - Vomiting [Recovered/Resolved]
  - Recalled product administered [Unknown]
